FAERS Safety Report 6812516-9 (Version None)
Quarter: 2010Q2

REPORT INFORMATION
  Report Type: 
  Country: None (occurrence: None)
  Receive Date: 20100628
  Receipt Date: 20100622
  Transmission Date: 20101027
  Serious: Yes (Other)
  Sender: FDA-Public Use
  Company Number: US-1182334

PATIENT
  Sex: Male

DRUGS (3)
  1. VIGAMOX [Suspect]
     Indication: CATARACT OPERATION
     Dosage: (OPHTHALMIC)
     Route: 047
  2. NEVANAC [Suspect]
     Indication: CATARACT OPERATION
     Dosage: (OPHTHALMIC)
     Route: 047
  3. OMNIPRED [Suspect]
     Indication: CATARACT OPERATION
     Dosage: (OPHTHALMIC)
     Route: 047

REACTIONS (3)
  - EYE INFECTION [None]
  - EYE INFECTION BACTERIAL [None]
  - INFECTION PARASITIC [None]
